FAERS Safety Report 8531226-3 (Version None)
Quarter: 2012Q3

REPORT INFORMATION
  Report Type: 
  Country: None (occurrence: None)
  Receive Date: 20120710
  Receipt Date: 20120625
  Transmission Date: 20120928
  Serious: Yes (Death, Hospitalization)
  Sender: FDA-Public Use
  Company Number: USW201206-000101

PATIENT
  Sex: Male

DRUGS (2)
  1. SEVOFLURANE [Suspect]
     Indication: ANAESTHESIA
     Dosage: GAS ANESTHETIC
  2. DANTROLENE SODIUM [Suspect]
     Indication: HYPERTHERMIA MALIGNANT
     Dosage: SEE IMAGE

REACTIONS (8)
  - HYPERTHERMIA MALIGNANT [None]
  - CARDIAC ARREST [None]
  - NO THERAPEUTIC RESPONSE [None]
  - COAGULOPATHY [None]
  - VENTRICULAR ARRHYTHMIA [None]
  - HAEMORRHAGE [None]
  - PULMONARY OEDEMA [None]
  - ORGAN FAILURE [None]
